FAERS Safety Report 14959844 (Version 1)
Quarter: 2018Q2

REPORT INFORMATION
  Report Type: Report from Study
  Country: US (occurrence: US)
  Receive Date: 20180531
  Receipt Date: 20180531
  Transmission Date: 20180711
  Serious: Yes (Other)
  Sender: FDA-Public Use
  Company Number: US-GILEAD-2018-0341169

PATIENT
  Sex: Male

DRUGS (1)
  1. SOFOSBUVIR W/VELPATASVIR [Suspect]
     Active Substance: SOFOSBUVIR\VELPATASVIR
     Indication: CHRONIC HEPATITIS C
     Dosage: 1 DF, QD
     Route: 048
     Dates: start: 20180426

REACTIONS (15)
  - Fatigue [Not Recovered/Not Resolved]
  - Urine output decreased [Unknown]
  - Libido decreased [Not Recovered/Not Resolved]
  - Faeces discoloured [Unknown]
  - Nausea [Unknown]
  - Influenza like illness [Unknown]
  - Malaise [Not Recovered/Not Resolved]
  - Internal haemorrhage [Unknown]
  - Poor quality sleep [Not Recovered/Not Resolved]
  - Pain in extremity [Not Recovered/Not Resolved]
  - Fluid intake reduced [Unknown]
  - Tongue discolouration [Recovered/Resolved]
  - Haemorrhoids [Not Recovered/Not Resolved]
  - Weight increased [Unknown]
  - Tendonitis [Not Recovered/Not Resolved]

NARRATIVE: CASE EVENT DATE: 201805
